FAERS Safety Report 8523154-4 (Version None)
Quarter: 2012Q3

REPORT INFORMATION
  Report Type: 
  Country: None (occurrence: None)
  Receive Date: 20120713
  Receipt Date: 20120713
  Transmission Date: 20120928
  Serious: Yes (Disabling, Other)
  Sender: FDA-Public Use
  Company Number: None

PATIENT
  Age: 41 Year
  Sex: Male
  Weight: 86.1834 kg

DRUGS (1)
  1. FINASTERIDE [Suspect]
     Indication: ALOPECIA
     Dosage: 1/4 OF 5 MG, TABLET , DIALY, PO
     Route: 048
     Dates: start: 20090710, end: 20110510

REACTIONS (3)
  - EJACULATION FAILURE [None]
  - DEPRESSED MOOD [None]
  - ERECTILE DYSFUNCTION [None]
